FAERS Safety Report 8171216-6 (Version None)
Quarter: 2012Q1

REPORT INFORMATION
  Report Type: 
  Country: None (occurrence: None)
  Receive Date: 20120228
  Receipt Date: 20120120
  Transmission Date: 20120608
  Serious: No
  Sender: FDA-Public Use
  Company Number: US-BRISTOL-MYERS SQUIBB COMPANY-16360265

PATIENT
  Age: 65 Year
  Sex: Male

DRUGS (6)
  1. ONGLYZA [Suspect]
     Dates: start: 20111201, end: 20111224
  2. LANTUS [Concomitant]
  3. FLUOXETINE [Concomitant]
  4. VIAGRA [Concomitant]
  5. ATENOLOL [Concomitant]
  6. DIOVAN [Concomitant]

REACTIONS (1)
  - RASH [None]
